FAERS Safety Report 18101885 (Version 2)
Quarter: 2021Q3

REPORT INFORMATION
  Report Type: Spontaneous
  Country: CA (occurrence: CA)
  Receive Date: 20200802
  Receipt Date: 20210803
  Transmission Date: 20211014
  Serious: Yes (Hospitalization)
  Sender: FDA-Public Use
  Company Number: CA-ASTRAZENECA-2020SE94975

PATIENT
  Age: 73 Year
  Sex: Female
  Weight: 66 kg

DRUGS (7)
  1. IMFINZI [Suspect]
     Active Substance: DURVALUMAB
     Indication: LUNG NEOPLASM MALIGNANT
     Dosage: DOSE UNKNOWN; 1 EVERY 14 WEEKS, FIRST DOSE
     Route: 042
     Dates: start: 20191203, end: 20191203
  2. IMFINZI [Suspect]
     Active Substance: DURVALUMAB
     Indication: LUNG NEOPLASM MALIGNANT
     Dosage: DOSE UNKNOWN; 1 EVERY 14 WEEKS, LAST DOSE
     Route: 042
     Dates: start: 20200129, end: 20200129
  3. HYDROCORTISONE. [Concomitant]
     Active Substance: HYDROCORTISONE
  4. NYSTATIN ORAL SUSPENSION 100000UNIT/ML USP [Concomitant]
     Active Substance: NYSTATIN
     Route: 048
  5. PERINDOPRIL/INDAPAMIDE [Concomitant]
     Active Substance: INDAPAMIDE\PERINDOPRIL
  6. AMOXICILLIN. [Concomitant]
     Active Substance: AMOXICILLIN
  7. LEVOTHYROXINE. [Concomitant]
     Active Substance: LEVOTHYROXINE

REACTIONS (1)
  - Diabetic ketoacidosis [Recovering/Resolving]

NARRATIVE: CASE EVENT DATE: 20200206
